FAERS Safety Report 14078673 (Version 1)
Quarter: 2017Q4

REPORT INFORMATION
  Report Type: Spontaneous
  Country: DE (occurrence: DE)
  Receive Date: 20171012
  Receipt Date: 20171012
  Transmission Date: 20180321
  Serious: Yes (Other)
  Sender: FDA-Public Use
  Company Number: DE-STRIDES ARCOLAB LIMITED-2017SP013198

PATIENT

DRUGS (9)
  1. TACROLIMUS. [Suspect]
     Active Substance: TACROLIMUS
     Dosage: 3 MG, PER DAY
     Route: 065
     Dates: start: 2013
  2. MYCOPHENOLATE MOFETIL. [Suspect]
     Active Substance: MYCOPHENOLATE MOFETIL
     Indication: RENAL TRANSPLANT
     Dosage: 1 G PER DAY
     Route: 065
     Dates: start: 201103
  3. TACROLIMUS. [Suspect]
     Active Substance: TACROLIMUS
     Dosage: 3.75 MG PER DAY
     Route: 065
     Dates: start: 201501
  4. TACROLIMUS. [Suspect]
     Active Substance: TACROLIMUS
     Dosage: 3 MG, PER DAY
     Route: 065
     Dates: start: 2014
  5. PREDNISOLONE. [Suspect]
     Active Substance: PREDNISOLONE
     Dosage: 30 MG, PER DAY
     Route: 065
     Dates: start: 2014
  6. PREDNISOLONE. [Suspect]
     Active Substance: PREDNISOLONE
     Indication: RENAL TRANSPLANT
     Dosage: 5 MG PER DAY
     Route: 065
     Dates: start: 201103
  7. PREDNISOLONE. [Suspect]
     Active Substance: PREDNISOLONE
     Dosage: 30 MG, PER DAY
     Route: 065
     Dates: start: 2013
  8. PREDNISOLONE. [Suspect]
     Active Substance: PREDNISOLONE
     Dosage: 10 MG PER DAY
     Route: 065
     Dates: start: 201501
  9. TACROLIMUS. [Suspect]
     Active Substance: TACROLIMUS
     Indication: RENAL TRANSPLANT
     Dosage: 2.5 MG, PER DAY
     Route: 065
     Dates: start: 201103

REACTIONS (1)
  - Transplant rejection [Unknown]
